FAERS Safety Report 9781001 (Version 1)
Quarter: 2013Q4

REPORT INFORMATION
  Report Type: Spontaneous
  Country: US (occurrence: US)
  Receive Date: 20131224
  Receipt Date: 20131224
  Transmission Date: 20140711
  Serious: Yes (Hospitalization)
  Sender: FDA-Public Use
  Company Number: US-UCBSA-107000

PATIENT
  Age: 51 Year
  Sex: Male

DRUGS (6)
  1. LACOSAMIDE [Suspect]
     Indication: STATUS EPILEPTICUS
  2. LEVETIRACETAM [Suspect]
     Indication: STATUS EPILEPTICUS
  3. LAMOTRIGINE [Concomitant]
     Indication: STATUS EPILEPTICUS
     Dosage: 200MG/300MG
  4. FELBATOL [Concomitant]
     Indication: STATUS EPILEPTICUS
  5. LORAZEPAM [Concomitant]
     Indication: STATUS EPILEPTICUS
     Dosage: PRN
  6. CLONAZEPAM [Concomitant]

REACTIONS (2)
  - Drug ineffective for unapproved indication [Unknown]
  - Overdose [Unknown]
